FAERS Safety Report 9231054 (Version 1)
Quarter: 2013Q1

REPORT INFORMATION
  Report Type: Spontaneous
  Country: US (occurrence: None)
  Receive Date: 20121031
  Receipt Date: 20121031
  Transmission Date: 20140127
  Serious: No
  Sender: FDA-Public Use
  Company Number: PHEH2012US016121

PATIENT
  Age: 24 Year
  Sex: Female
  Weight: 52.2 kg

DRUGS (5)
  1. GILENYA (FTY) CAPSULE, 0.5MG [Suspect]
     Route: 048
  2. GABAPENTIN (GABAPENTIN) [Concomitant]
  3. VITAMIN D (ERGOCALCIFEROL) [Concomitant]
  4. MULTIVITAMIN (VITAMINS NOS) [Concomitant]
  5. FOLIC ACID (FOLIC ACID) [Concomitant]

REACTIONS (1)
  - Chest pain [None]
